FAERS Safety Report 8713079 (Version 3)
Quarter: 2012Q4

REPORT INFORMATION
  Report Type: 
  Country: CA (occurrence: CA)
  Receive Date: 20120808
  Receipt Date: 20121023
  Transmission Date: 20130627
  Serious: Yes (Death, Other)
  Sender: FDA-Public Use
  Company Number: CA-PFIZER INC-2012190888

PATIENT
  Age: 44 Year
  Sex: Male

DRUGS (4)
  1. ZELDOX [Suspect]
     Indication: PSYCHOTIC DISORDER
     Dosage: 40 mg, UNK
     Route: 048
     Dates: start: 20120221, end: 201202
  2. ZELDOX [Suspect]
     Dosage: 60 mg, UNK
     Route: 048
     Dates: start: 201202
  3. ATIVAN [Concomitant]
     Dosage: 0.5 mg, as needed, max 3/24 h
  4. RESTON [Concomitant]
     Dosage: 30 mg, as needed, max 1/24 h

REACTIONS (7)
  - Completed suicide [Fatal]
  - Drug ineffective [Not Recovered/Not Resolved]
  - Panic attack [Not Recovered/Not Resolved]
  - Anxiety [Not Recovered/Not Resolved]
  - Palpitations [Not Recovered/Not Resolved]
  - Insomnia [Not Recovered/Not Resolved]
  - Malaise [Not Recovered/Not Resolved]
